FAERS Safety Report 15383882 (Version 1)
Quarter: 2018Q3

REPORT INFORMATION
  Report Type: Spontaneous
  Country: US (occurrence: US)
  Receive Date: 20180913
  Receipt Date: 20180913
  Transmission Date: 20181010
  Serious: Yes (Hospitalization)
  Sender: FDA-Public Use
  Company Number: US-ROCHE-2183968

PATIENT
  Age: 73 Year
  Sex: Male

DRUGS (2)
  1. NORMAL SALINE [Concomitant]
     Active Substance: SODIUM CHLORIDE
  2. GAZYVA [Suspect]
     Active Substance: OBINUTUZUMAB
     Indication: B-CELL LYMPHOMA
     Dosage: OVER 4 HOURS, 1ST SPLIT DOSE
     Route: 042
     Dates: start: 20180910

REACTIONS (3)
  - Hypoxia [Unknown]
  - Dizziness [Unknown]
  - Chills [Unknown]

NARRATIVE: CASE EVENT DATE: 20180910
